FAERS Safety Report 17911056 (Version 5)
Quarter: 2020Q4

REPORT INFORMATION
  Report Type: Other
  Country: JP (occurrence: JP)
  Receive Date: 20200618
  Receipt Date: 20201113
  Transmission Date: 20210113
  Serious: Yes (Death, Hospitalization, Other)
  Sender: FDA-Public Use
  Company Number: JP-ASTELLAS-2020JP008371

PATIENT
  Age: 80 Year
  Sex: Male
  Weight: 59 kg

DRUGS (20)
  1. XTANDI [Suspect]
     Active Substance: ENZALUTAMIDE
     Indication: PROSTATE CANCER
     Route: 048
     Dates: start: 20191031, end: 20191218
  2. XTANDI [Suspect]
     Active Substance: ENZALUTAMIDE
     Route: 048
     Dates: start: 20200116, end: 20200128
  3. LYRICA [Concomitant]
     Active Substance: PREGABALIN
     Indication: OSTEONECROSIS OF JAW
     Route: 048
     Dates: start: 20171124, end: 20200606
  4. NEOSTELIN GREEN [Concomitant]
     Active Substance: BENZETHONIUM CHLORIDE
     Indication: OSTEONECROSIS OF JAW
     Dosage: UNK UNK, THRICE DAILY
     Route: 048
     Dates: start: 20170531, end: 20200606
  5. ISOSORBIDE MONONITRATE. [Concomitant]
     Active Substance: ISOSORBIDE MONONITRATE
     Indication: ANGINA PECTORIS
     Route: 048
     Dates: start: 20181024, end: 20200606
  6. VALSARTAN. [Concomitant]
     Active Substance: VALSARTAN
     Indication: HYPERTENSION
     Route: 048
     Dates: start: 20181219, end: 20200606
  7. BISONO [Concomitant]
     Active Substance: BISOPROLOL
     Indication: HYPERTENSION
     Route: 050
     Dates: start: 20181107, end: 20200606
  8. CLOPIDOGREL [Concomitant]
     Active Substance: CLOPIDOGREL BISULFATE
     Indication: ANGINA PECTORIS
     Route: 048
     Dates: start: 20190516, end: 20200606
  9. TAKECAB [Concomitant]
     Active Substance: VONOPRAZAN FUMARATE
     Indication: ANGINA PECTORIS
     Route: 048
     Dates: start: 20190517, end: 20200606
  10. AMOXICILLIN HYDRATE [Concomitant]
     Active Substance: AMOXICILLIN
     Indication: PRODUCT USED FOR UNKNOWN INDICATION
     Dosage: UNK UNK, UNKNOWN FREQ.
     Route: 065
  11. BROTIZOLAM [Concomitant]
     Active Substance: BROTIZOLAM
     Indication: INSOMNIA
     Dosage: 0.25 MG, ONCE DAILY
     Route: 048
     Dates: start: 20190517, end: 20200606
  12. XTANDI [Suspect]
     Active Substance: ENZALUTAMIDE
     Indication: PROSTATE CANCER
     Route: 048
     Dates: start: 20191031, end: 20191218
  13. ROSUVASTATIN OD [Concomitant]
     Indication: HYPERLIPIDAEMIA
     Route: 048
     Dates: start: 20181219, end: 20200606
  14. LEUPLIN [Concomitant]
     Active Substance: LEUPROLIDE ACETATE
     Indication: PROSTATE CANCER
     Route: 058
     Dates: start: 20171207, end: 20191031
  15. XTANDI [Suspect]
     Active Substance: ENZALUTAMIDE
     Route: 048
     Dates: start: 20191219, end: 20200115
  16. METHYCOBAL [Concomitant]
     Active Substance: METHYLCOBALAMIN
     Indication: OSTEONECROSIS OF JAW
     Route: 048
     Dates: start: 20170526, end: 20200606
  17. LOXOPROFEN NA [Concomitant]
     Active Substance: LOXOPROFEN SODIUM
     Indication: OSTEONECROSIS OF JAW
     Route: 048
     Dates: start: 20171102, end: 20200606
  18. BAYASPIRIN [Concomitant]
     Active Substance: ASPIRIN
     Indication: ANGINA PECTORIS
     Route: 048
     Dates: start: 20181219, end: 20200606
  19. FLUTAMIDE. [Concomitant]
     Active Substance: FLUTAMIDE
     Indication: PROSTATE CANCER
     Route: 048
     Dates: start: 20171207, end: 20191031
  20. AMLODIPINE [Concomitant]
     Active Substance: AMLODIPINE BESYLATE
     Indication: HYPERTENSION
     Route: 048
     Dates: start: 20181219, end: 20200606

REACTIONS (4)
  - Seizure [Recovered/Resolved]
  - Malaise [Recovering/Resolving]
  - Interstitial lung disease [Fatal]
  - Prescribed underdose [Unknown]

NARRATIVE: CASE EVENT DATE: 20191031
